FAERS Safety Report 21188436 (Version 1)
Quarter: 2022Q3

REPORT INFORMATION
  Report Type: Spontaneous
  Country: ES (occurrence: ES)
  Receive Date: 20220809
  Receipt Date: 20220809
  Transmission Date: 20221027
  Serious: Yes (Life-Threatening, Hospitalization, Other)
  Sender: FDA-Public Use
  Company Number: ES-AEMPS-1233891

PATIENT
  Age: 67 Year
  Sex: Male

DRUGS (6)
  1. SERTRALINE [Suspect]
     Active Substance: SERTRALINE HYDROCHLORIDE
     Indication: Dementia
     Dosage: 50 MILLIGRAM, ONCE A DAY
     Route: 048
     Dates: start: 202201
  2. SINEMET [Suspect]
     Active Substance: CARBIDOPA\LEVODOPA
     Indication: Dementia
     Dosage: 3 DOSAGE FORM, ONCE A DAY, (60 TABLETS, UNCOATED)
     Route: 048
     Dates: start: 202201
  3. LEVETIRACETAM [Suspect]
     Active Substance: LEVETIRACETAM
     Indication: Dementia
     Dosage: 1.5 MILLIGRAM, ONCE A DAY
     Route: 048
     Dates: start: 202103
  4. TRAZODONE [Suspect]
     Active Substance: TRAZODONE HYDROCHLORIDE
     Indication: Dementia
     Dosage: 100 MILLIGRAM, ONCE A DAY
     Route: 048
     Dates: start: 202201
  5. SOLIFENACIN\TAMSULOSIN [Suspect]
     Active Substance: SOLIFENACIN\TAMSULOSIN
     Indication: Benign prostatic hyperplasia
     Dosage: 1 DOSAGE FORM, ONCE A DAY, (30 TABLETS)
     Route: 048
     Dates: start: 201606
  6. LORMETAZEPAM [Concomitant]
     Active Substance: LORMETAZEPAM
     Indication: Insomnia
     Dosage: 1 MILLIGRAM, ONCE A DAY, (30 TABLETS, UNCOATED)
     Route: 048
     Dates: start: 201904

REACTIONS (1)
  - Atrioventricular block complete [Recovered/Resolved with Sequelae]

NARRATIVE: CASE EVENT DATE: 20220615
